FAERS Safety Report 15238660 (Version 1)
Quarter: 2018Q3

REPORT INFORMATION
  Report Type: Report from Study
  Country: None (occurrence: JP)
  Receive Date: 20180803
  Receipt Date: 20180803
  Transmission Date: 20181010
  Serious: Yes (Hospitalization, Other)
  Sender: FDA-Public Use
  Company Number: JP-BAUSCH-BL-2018-020776

PATIENT
  Age: 69 Year
  Sex: Male
  Weight: 60 kg

DRUGS (10)
  1. TARGRETIN [Suspect]
     Active Substance: BEXAROTENE
     Dosage: 450 MG (75 MG,6 IN 1 DAY)
     Route: 048
     Dates: start: 20170823
  2. TARGRETIN [Suspect]
     Active Substance: BEXAROTENE
     Dosage: 450 MG (75 MG, 6 IN 1 DAY)
     Route: 048
     Dates: start: 20160930, end: 20161006
  3. TARGRETIN [Suspect]
     Active Substance: BEXAROTENE
     Dosage: 225 MG (75 MG,3 IN 1 DAY)
     Route: 048
     Dates: start: 20170216, end: 20170613
  4. TARGRETIN [Suspect]
     Active Substance: BEXAROTENE
     Dosage: 300 MG (75 MG,4 IN 1 DAY)
     Route: 048
     Dates: start: 20170614, end: 20170711
  5. TARGRETIN [Suspect]
     Active Substance: BEXAROTENE
     Dosage: 150 MG (75 MG, 2 IN 1 DAY)
     Route: 048
     Dates: start: 20161014, end: 20161201
  6. TARGRETIN [Suspect]
     Active Substance: BEXAROTENE
     Dosage: 300 MG (75 MG, 4 IN 1 DAY)
     Route: 048
     Dates: start: 20161007, end: 20161013
  7. TARGRETIN [Suspect]
     Active Substance: BEXAROTENE
     Dosage: 375 MG (75 MG,5 IN 1 DAY)
     Route: 048
     Dates: start: 20170712, end: 20170822
  8. TARGRETIN [Suspect]
     Active Substance: BEXAROTENE
     Indication: MYCOSIS FUNGOIDES
     Dosage: 450 MG (75 MG, 6 IN 1 DAY)
     Route: 048
     Dates: start: 20160819, end: 20160915
  9. TARGRETIN [Suspect]
     Active Substance: BEXAROTENE
     Dosage: 300 MG (75 MG, 4 IN 1 DAY)
     Route: 048
     Dates: start: 20161221, end: 20170207
  10. TARGRETIN [Suspect]
     Active Substance: BEXAROTENE
     Dosage: 225 MG (75 MG, 3 IN 1 DAY)
     Route: 048
     Dates: start: 20161202, end: 20161220

REACTIONS (4)
  - Erysipelas [Recovering/Resolving]
  - Anaemia [Not Recovered/Not Resolved]
  - Hypothyroidism [Recovered/Resolved]
  - Hypertriglyceridaemia [Recovered/Resolved]

NARRATIVE: CASE EVENT DATE: 20160826
